FAERS Safety Report 23611433 (Version 1)
Quarter: 2024Q1

REPORT INFORMATION
  Report Type: Report from Study
  Country: US (occurrence: None)
  Receive Date: 20240308
  Receipt Date: 20240308
  Transmission Date: 20240410
  Serious: Yes (Other)
  Sender: FDA-Public Use
  Company Number: 2024A053697

PATIENT
  Sex: Male

DRUGS (2)
  1. CALQUENCE [Suspect]
     Active Substance: ACALABRUTINIB
     Indication: Chronic lymphocytic leukaemia
     Route: 048
     Dates: start: 202401
  2. CELEBREX [Concomitant]
     Active Substance: CELECOXIB

REACTIONS (8)
  - Arthropathy [Unknown]
  - Influenza [Unknown]
  - Atrial fibrillation [Unknown]
  - Recurrent cancer [Unknown]
  - Pyrexia [Unknown]
  - Night sweats [Unknown]
  - Nausea [Unknown]
  - Intentional product use issue [Unknown]
